FAERS Safety Report 4918395-9 (Version None)
Quarter: 2006Q1

REPORT INFORMATION
  Report Type: 
  Country: None (occurrence: None)
  Receive Date: 20060217
  Receipt Date: 20060217
  Transmission Date: 20060701
  Serious: Yes (Other)
  Sender: FDA-Public Use
  Company Number: None

PATIENT
  Age: 57 Year
  Sex: Female
  Weight: 79.3795 kg

DRUGS (15)
  1. ISOVUE-300 [Suspect]
     Indication: COMPUTERISED TOMOGRAM
     Dosage: 130 ML  IV  X 1 DOSE
     Route: 042
     Dates: start: 20051108
  2. BARIUM SULFATE ORAL (REDI-CAT) (E-Z-AM) [Suspect]
     Indication: COMPUTERISED TOMOGRAM
     Dosage: 225 MG PO X 2
     Route: 048
     Dates: start: 20051108
  3. DULOXETINE [Concomitant]
  4. HYDROCODONE BITARTRATE + ACETAMINOPHEN [Concomitant]
  5. RABEPRAZOLE SODIUM [Concomitant]
  6. MULTIVIT WITH MINERALS [Concomitant]
  7. MEDROXYPROGESTERONE [Concomitant]
  8. GUAIFENESIN [Concomitant]
  9. TRAZODONE [Concomitant]
  10. FLUTICASONE PROPIONATE [Concomitant]
  11. PROCHLORPERAZINE [Concomitant]
  12. NAPHAZOLINE HCL [Concomitant]
  13. CALCIUM CARBONATE/VITAMIN D [Concomitant]
  14. COMBIVENT [Concomitant]
  15. TRAMADOL HCL [Concomitant]

REACTIONS (3)
  - POST PROCEDURAL COMPLICATION [None]
  - PRURITUS [None]
  - URTICARIA [None]
